FAERS Safety Report 21582492 (Version 1)
Quarter: 2022Q4

REPORT INFORMATION
  Report Type: Spontaneous
  Country: US (occurrence: US)
  Receive Date: 20221111
  Receipt Date: 20221111
  Transmission Date: 20230113
  Serious: No
  Sender: FDA-Public Use
  Company Number: US-PFIZER INC-202201287220

PATIENT
  Age: 79 Year
  Sex: Female
  Weight: 58.97 kg

DRUGS (1)
  1. PAXLOVID [Suspect]
     Active Substance: NIRMATRELVIR\RITONAVIR
     Indication: COVID-19 treatment
     Dosage: UNK
     Dates: start: 20221103, end: 20221107

REACTIONS (8)
  - Malaise [Unknown]
  - Abdominal discomfort [Unknown]
  - Infrequent bowel movements [Unknown]
  - Hyperhidrosis [Unknown]
  - Nausea [Unknown]
  - Dyspnoea [Recovered/Resolved]
  - COVID-19 [Unknown]
  - Disease recurrence [Unknown]

NARRATIVE: CASE EVENT DATE: 20221108
